FAERS Safety Report 11433108 (Version 1)
Quarter: 2015Q3

REPORT INFORMATION
  Report Type: Spontaneous
  Country: US (occurrence: None)
  Receive Date: 20150828
  Receipt Date: 20150828
  Transmission Date: 20151125
  Serious: Yes (Other)
  Sender: FDA-Public Use
  Company Number: None

PATIENT
  Age: 67 Year
  Sex: Female

DRUGS (1)
  1. XELODA [Suspect]
     Active Substance: CAPECITABINE
     Indication: BREAST CANCER
     Dosage: STRENGTH: 500
     Route: 048
     Dates: start: 201407

REACTIONS (4)
  - Skin infection [None]
  - Hyperaesthesia [None]
  - Skin exfoliation [None]
  - Dry skin [None]

NARRATIVE: CASE EVENT DATE: 20150726
